FAERS Safety Report 10477101 (Version 3)
Quarter: 2014Q4

REPORT INFORMATION
  Report Type: Spontaneous
  Country: US (occurrence: US)
  Receive Date: 20140926
  Receipt Date: 20141211
  Transmission Date: 20150528
  Serious: No
  Sender: FDA-Public Use
  Company Number: US-BIOGENIDEC-2014BI095572

PATIENT
  Sex: Female

DRUGS (2)
  1. TECFIDERA [Suspect]
     Active Substance: DIMETHYL FUMARATE
     Indication: PRODUCT USED FOR UNKNOWN INDICATION
  2. SOLU-MEDROL [Concomitant]
     Active Substance: METHYLPREDNISOLONE SODIUM SUCCINATE

REACTIONS (14)
  - Nausea [Unknown]
  - Weight decreased [Unknown]
  - Pain [Unknown]
  - Herpes zoster [Unknown]
  - Feeding disorder [Unknown]
  - Post herpetic neuralgia [Unknown]
  - Flushing [Not Recovered/Not Resolved]
  - General symptom [Unknown]
  - Burning sensation [Unknown]
  - Diarrhoea [Unknown]
  - Oral herpes [Unknown]
  - Osteoporosis [Not Recovered/Not Resolved]
  - Vomiting [Unknown]
  - Blood pressure increased [Unknown]
